FAERS Safety Report 7444689-1 (Version None)
Quarter: 2011Q2

REPORT INFORMATION
  Report Type: 
  Country: None (occurrence: None)
  Receive Date: 20110429
  Receipt Date: 20110420
  Transmission Date: 20111010
  Serious: Yes (Other)
  Sender: FDA-Public Use
  Company Number: DE-NOVOPROD-323540

PATIENT
  Sex: Female
  Weight: 152 kg

DRUGS (4)
  1. VICTOZA [Suspect]
     Indication: TYPE 2 DIABETES MELLITUS
     Dosage: 1.8 MG, UNK
     Route: 058
     Dates: end: 20091031
  2. FURORESE                           /00032601/ [Concomitant]
     Dosage: UNK
     Dates: start: 20081001
  3. VICTOZA [Suspect]
     Dosage: UNK
     Route: 058
     Dates: start: 20091101, end: 20110101
  4. METFORMIN HYDROCHLORIDE [Concomitant]
     Dosage: UNK
     Route: 048

REACTIONS (2)
  - HYPOGLYCAEMIA [None]
  - TACHYCARDIA [None]
